FAERS Safety Report 7530975-3 (Version None)
Quarter: 2011Q2

REPORT INFORMATION
  Report Type: 
  Country: None (occurrence: None)
  Receive Date: 20110608
  Receipt Date: 20110527
  Transmission Date: 20111010
  Serious: Yes (Hospitalization)
  Sender: FDA-Public Use
  Company Number: JP-JNJFOC-20110506229

PATIENT
  Sex: Female

DRUGS (12)
  1. KETAS [Concomitant]
     Indication: DEMENTIA
     Route: 048
  2. CHOUTOUSAN [Concomitant]
     Indication: DEMENTIA
     Route: 048
  3. HOKUNALIN [Concomitant]
     Indication: PNEUMONIA
     Route: 062
     Dates: start: 20110402, end: 20110418
  4. LEVOFLOXACIN [Suspect]
     Indication: PNEUMONIA
     Route: 048
     Dates: start: 20110402, end: 20110418
  5. ALDIOXA [Concomitant]
     Indication: DEMENTIA
     Route: 048
  6. CALCITRIOL [Concomitant]
     Indication: OSTEOPOROSIS
     Route: 048
  7. EPHEDRINE HYDROCHLORIDE [Concomitant]
     Indication: PNEUMONIA
     Route: 048
     Dates: start: 20110402, end: 20110418
  8. COUGHNOL [Concomitant]
     Indication: PNEUMONIA
     Route: 048
     Dates: start: 20110402, end: 20110418
  9. BONALON [Concomitant]
     Indication: OSTEOPOROSIS
     Route: 048
  10. ARICEPT [Concomitant]
     Indication: DEMENTIA
     Route: 048
  11. MUCODYNE [Concomitant]
     Indication: PNEUMONIA
     Dosage: 750 MG
     Route: 048
     Dates: start: 20110402, end: 20110418
  12. ACETAMINOPHEN [Suspect]
     Indication: PNEUMONIA
     Route: 048
     Dates: start: 20110402, end: 20110418

REACTIONS (2)
  - ALTERED STATE OF CONSCIOUSNESS [None]
  - DRUG LEVEL INCREASED [None]
